FAERS Safety Report 23466116 (Version 1)
Quarter: 2024Q1

REPORT INFORMATION
  Report Type: Spontaneous
  Country: JP (occurrence: JP)
  Receive Date: 20240201
  Receipt Date: 20240201
  Transmission Date: 20240410
  Serious: Yes (Hospitalization, Other)
  Sender: FDA-Public Use
  Company Number: JP-CHUGAI-2024001917

PATIENT
  Age: 90 Year
  Sex: Male

DRUGS (2)
  1. ACTEMRA [Suspect]
     Active Substance: TOCILIZUMAB
     Indication: Rheumatoid arthritis
     Dosage: UNK UNK, ONCE/MONTH
     Route: 058
  2. PREDONINE [Concomitant]
     Active Substance: PREDNISOLONE
     Dosage: UNK, QD

REACTIONS (4)
  - Cardiac failure [Unknown]
  - COVID-19 [Unknown]
  - Pulmonary oedema [Unknown]
  - Off label use [Unknown]

NARRATIVE: CASE EVENT DATE: 20230101
